FAERS Safety Report 17533551 (Version 1)
Quarter: 2020Q1

REPORT INFORMATION
  Report Type: Spontaneous
  Country: US (occurrence: US)
  Receive Date: 20200312
  Receipt Date: 20200312
  Transmission Date: 20200409
  Serious: No
  Sender: FDA-Public Use
  Company Number: None

PATIENT
  Age: 58 Year
  Sex: Male
  Weight: 76.5 kg

DRUGS (9)
  1. XIAFLEX [Suspect]
     Active Substance: COLLAGENASE CLOSTRIDIUM HISTOLYTICUM
     Indication: PEYRONIE^S DISEASE
     Dosage: ?          OTHER FREQUENCY:2 INJ. PER CYCLE;OTHER ROUTE:INJECTED INTO THE PEYRONIE^ PLAQUE?
     Dates: start: 20191014, end: 20191016
  2. ALPRAZOLAM. [Concomitant]
     Active Substance: ALPRAZOLAM
  3. HYDROCODONE [Concomitant]
     Active Substance: HYDROCODONE
  4. INCRUSE ELLIPTA [Concomitant]
     Active Substance: UMECLIDINIUM BROMIDE
  5. DILTIAZAM [Concomitant]
  6. BABY ASPRIN [Concomitant]
     Active Substance: ASPIRIN
  7. SYMBICORT [Concomitant]
     Active Substance: BUDESONIDE\FORMOTEROL FUMARATE DIHYDRATE
  8. VENTOLIN [Concomitant]
     Active Substance: ALBUTEROL SULFATE
  9. CYCLOBENZAPRIN [Concomitant]
     Active Substance: CYCLOBENZAPRINE

REACTIONS (10)
  - Drug ineffective [None]
  - Hypertension [None]
  - Iatrogenic injury [None]
  - Penile prosthesis insertion [None]
  - Emotional distress [None]
  - Drug monitoring procedure not performed [None]
  - Depression [None]
  - Product administration error [None]
  - Device failure [None]
  - Product communication issue [None]

NARRATIVE: CASE EVENT DATE: 20191014
